FAERS Safety Report 6443130-5 (Version None)
Quarter: 2009Q4

REPORT INFORMATION
  Report Type: 
  Country: None (occurrence: None)
  Receive Date: 20091117
  Receipt Date: 20091111
  Transmission Date: 20100525
  Serious: Yes (Other)
  Sender: FDA-Public Use
  Company Number: A0816510A

PATIENT
  Age: 76 Year
  Sex: Female

DRUGS (9)
  1. ADVAIR DISKUS 100/50 [Suspect]
     Indication: CHRONIC OBSTRUCTIVE PULMONARY DISEASE
     Dosage: 1PUFF TWICE PER DAY
     Route: 055
     Dates: start: 20071101
  2. ALBUTEROL [Concomitant]
  3. VERAPAMIL [Concomitant]
  4. PROVENTIL-HFA [Concomitant]
  5. LIPITOR [Concomitant]
  6. THEOPHYLLINE [Concomitant]
  7. LEXAPRO [Concomitant]
  8. LASIX [Concomitant]
  9. POTASSIUM CHLORIDE [Concomitant]

REACTIONS (4)
  - DRUG INEFFECTIVE [None]
  - DYSPNOEA [None]
  - FEELING ABNORMAL [None]
  - HYPOXIA [None]
